FAERS Safety Report 5392765-X (Version None)
Quarter: 2007Q3

REPORT INFORMATION
  Report Type: 
  Country: None (occurrence: None)
  Receive Date: 20070720
  Receipt Date: 20070702
  Transmission Date: 20080115
  Serious: Yes (Hospitalization, Other)
  Sender: FDA-Public Use
  Company Number: US-PFIZER INC-2007031676

PATIENT
  Sex: Male
  Weight: 98 kg

DRUGS (5)
  1. BEXTRA [Suspect]
     Indication: OSTEOARTHRITIS
     Route: 048
  2. VIOXX [Suspect]
     Indication: OSTEOARTHRITIS
  3. AVALIDE [Concomitant]
  4. ACETYLSALICYLIC ACID SRT [Concomitant]
     Dates: start: 20010101, end: 20050101
  5. LESCOL [Concomitant]
     Dates: start: 20010101, end: 20050101

REACTIONS (4)
  - AMNESIA [None]
  - CEREBROVASCULAR ACCIDENT [None]
  - MYOCARDIAL INFARCTION [None]
  - PAIN [None]
